FAERS Safety Report 21815664 (Version 1)
Quarter: 2023Q1

REPORT INFORMATION
  Report Type: Spontaneous
  Country: JP (occurrence: JP)
  Receive Date: 20230104
  Receipt Date: 20230104
  Transmission Date: 20230417
  Serious: Yes (Hospitalization)
  Sender: FDA-Public Use
  Company Number: JP-BAUSCH-BL-2023-000028

PATIENT
  Age: 72 Year
  Sex: Male

DRUGS (8)
  1. RIFAXIMIN [Suspect]
     Active Substance: RIFAXIMIN
     Indication: Product used for unknown indication
     Dosage: 600 MILLIGRAM(S), IN 1 DAY
     Route: 048
  2. BEVACIZUMAB [Suspect]
     Active Substance: BEVACIZUMAB
     Indication: Hepatocellular carcinoma
     Dosage: BEVACIZUMAB(GENETICAL RECOMBINATION)
     Route: 065
  3. ATEZOLIZUMAB [Suspect]
     Active Substance: ATEZOLIZUMAB
     Indication: Hepatocellular carcinoma
     Dosage: ATEZOLIZUMAB(GENETICAL RECOMBINATION)
     Route: 065
  4. URSODIOL [Concomitant]
     Active Substance: URSODIOL
     Indication: Product used for unknown indication
     Dosage: 300 MILLIGRAM(S), IN 1 DAY
     Route: 048
  5. FAMOTIDINE [Concomitant]
     Active Substance: FAMOTIDINE
     Indication: Product used for unknown indication
     Dosage: (40 MILLIGRAM(S), IN 1 DAY)
     Route: 048
  6. ENTECAVIR [Concomitant]
     Active Substance: ENTECAVIR
     Indication: Product used for unknown indication
     Dosage: ENTECAVIR HYDRATE, (0.5 MILLIGRAM(S), IN 1 DAY)
     Route: 048
  7. WARFARIN POTASSIUM [Concomitant]
     Active Substance: WARFARIN POTASSIUM
     Indication: Product used for unknown indication
     Dosage: (2 MILLIGRAM(S), IN 1 DAY)
     Route: 048
  8. ISOLEUCINE;LEUCINE;VALINE [Concomitant]
     Indication: Product used for unknown indication
     Dosage: (12.45 MILLIGRAM(S), IN 1 DAY)
     Route: 048

REACTIONS (1)
  - Enterocolitis [Recovering/Resolving]
